FAERS Safety Report 15773036 (Version 1)
Quarter: 2018Q4

REPORT INFORMATION
  Report Type: Spontaneous
  Country: AU (occurrence: AU)
  Receive Date: 20181228
  Receipt Date: 20181228
  Transmission Date: 20190205
  Serious: Yes (Other)
  Sender: FDA-Public Use
  Company Number: AU-GE HEALTHCARE LIFE SCIENCES-2018CSU005235

PATIENT

DRUGS (5)
  1. OMNIPAQUE [Suspect]
     Active Substance: IOHEXOL
     Indication: ELECTROCARDIOGRAM ST SEGMENT ELEVATION
  2. OMNIPAQUE [Suspect]
     Active Substance: IOHEXOL
     Indication: ELECTROCARDIOGRAM ST SEGMENT DEPRESSION
  3. OMNIPAQUE [Suspect]
     Active Substance: IOHEXOL
     Indication: ANGIOCARDIOGRAM
     Dosage: UNK UNK, SINGLE
     Route: 013
  4. OMNIPAQUE [Suspect]
     Active Substance: IOHEXOL
     Indication: SYNCOPE
     Dosage: UNK, SINGLE
     Route: 013
  5. OMNIPAQUE [Suspect]
     Active Substance: IOHEXOL
     Indication: TROPONIN INCREASED

REACTIONS (3)
  - Urticaria [Unknown]
  - Hypotension [Unknown]
  - Kounis syndrome [Unknown]
